FAERS Safety Report 19092213 (Version 1)
Quarter: 2021Q2

REPORT INFORMATION
  Report Type: Spontaneous
  Country: US (occurrence: US)
  Receive Date: 20210405
  Receipt Date: 20210405
  Transmission Date: 20210717
  Serious: Yes (Other)
  Sender: FDA-Public Use
  Company Number: US-FERRINGPH-2021FE02028

PATIENT
  Age: 66 Year
  Sex: Male
  Weight: 102 kg

DRUGS (3)
  1. FIRMAGON [Suspect]
     Active Substance: DEGARELIX ACETATE
     Dosage: 80 MG
     Route: 058
     Dates: start: 202102
  2. FIRMAGON [Suspect]
     Active Substance: DEGARELIX ACETATE
     Dosage: UNK, MONTHLY
     Route: 065
     Dates: start: 2019
  3. FIRMAGON [Suspect]
     Active Substance: DEGARELIX ACETATE
     Indication: PROSTATE CANCER
     Dosage: UNK
     Route: 058
     Dates: start: 20210120

REACTIONS (13)
  - Influenza like illness [Recovered/Resolved]
  - Prostate cancer [Not Recovered/Not Resolved]
  - Pain [Recovered/Resolved]
  - Injection site mass [Recovered/Resolved]
  - Injection site erythema [Unknown]
  - Prostatic specific antigen increased [Unknown]
  - Influenza like illness [Recovered/Resolved]
  - Presyncope [Recovered/Resolved]
  - Injection site pruritus [Recovered/Resolved]
  - Influenza like illness [Recovered/Resolved]
  - Injection site pain [Recovered/Resolved]
  - Asthenia [Unknown]
  - Wrong technique in product usage process [Unknown]

NARRATIVE: CASE EVENT DATE: 2019
